FAERS Safety Report 24378518 (Version 1)
Quarter: 2024Q3

REPORT INFORMATION
  Report Type: Spontaneous
  Country: FR (occurrence: FR)
  Receive Date: 20240930
  Receipt Date: 20240930
  Transmission Date: 20241016
  Serious: Yes (Hospitalization)
  Sender: BRISTOL MYERS SQUIBB
  Company Number: None

PATIENT
  Age: 61 Year
  Sex: Male
  Weight: 98.1 kg

DRUGS (11)
  1. OPDIVO [Suspect]
     Active Substance: NIVOLUMAB
     Indication: Adenocarcinoma gastric
     Dosage: C1
     Route: 042
     Dates: start: 20240301, end: 20240301
  2. CARBIMAZOLE [Suspect]
     Active Substance: CARBIMAZOLE
     Indication: Hyperthyroidism
     Dosage: 1 CPR IN THE MORNING
     Route: 048
     Dates: start: 20240304, end: 20240318
  3. AMIKACIN [Concomitant]
     Active Substance: AMIKACIN
     Indication: Staphylococcal infection
     Dosage: 1 UNIT MORNING
     Route: 003
     Dates: start: 20240305, end: 20240312
  4. AMIKACIN [Concomitant]
     Active Substance: AMIKACIN
     Indication: Pseudomonas infection
  5. FLAGYL [Concomitant]
     Active Substance: METRONIDAZOLE\METRONIDAZOLE HYDROCHLORIDE
     Indication: Staphylococcal infection
     Route: 042
     Dates: start: 20240305, end: 20240312
  6. AUGMENTIN [Concomitant]
     Active Substance: AMOXICILLIN\CLAVULANATE POTASSIUM
     Indication: Staphylococcal infection
     Dosage: 1 G/125 MG ADULTS, 1 SACHET MORNING, NOON, EVENING?(AMOXICILLIN/CLAVULANIC ACID RATIO: 8:1)
     Route: 048
     Dates: start: 20240305, end: 20240305
  7. AUGMENTIN [Concomitant]
     Active Substance: AMOXICILLIN\CLAVULANATE POTASSIUM
     Indication: Pseudomonas infection
  8. FLUOROURACIL [Concomitant]
     Active Substance: FLUOROURACIL
     Indication: Adenocarcinoma gastric
     Dosage: 800 MG + 4800 MG
     Route: 042
     Dates: start: 20240301, end: 20240301
  9. CEFTRIAXONE SODIUM [Concomitant]
     Active Substance: CEFTRIAXONE SODIUM
     Indication: Staphylococcal infection
     Dosage: 1 G
     Route: 042
     Dates: start: 20240305, end: 20240312
  10. CEFTRIAXONE SODIUM [Concomitant]
     Active Substance: CEFTRIAXONE SODIUM
     Indication: Pseudomonas infection
  11. OXALIPLATIN [Concomitant]
     Active Substance: OXALIPLATIN
     Indication: Adenocarcinoma gastric
     Dosage: 170 MG
     Route: 042
     Dates: start: 20240301, end: 20240301

REACTIONS (1)
  - Lichenoid keratosis [Recovered/Resolved]

NARRATIVE: CASE EVENT DATE: 20240310
